FAERS Safety Report 8213133-9 (Version None)
Quarter: 2012Q1

REPORT INFORMATION
  Report Type: 
  Country: None (occurrence: None)
  Receive Date: 20120315
  Receipt Date: 20120308
  Transmission Date: 20120608
  Serious: Yes (Other)
  Sender: FDA-Public Use
  Company Number: BR-ABBOTT-12P-020-0914625-00

PATIENT

DRUGS (4)
  1. HUMIRA [Suspect]
     Indication: CROHN'S DISEASE
     Dosage: EVERY 15 DAYS
  2. IMOSEC [Concomitant]
     Indication: PRODUCT USED FOR UNKNOWN INDICATION
  3. MESALAMINE [Concomitant]
     Indication: PRODUCT USED FOR UNKNOWN INDICATION
  4. IMOSEC [Concomitant]

REACTIONS (13)
  - FISTULA [None]
  - SKIN EXFOLIATION [None]
  - NO THERAPEUTIC RESPONSE [None]
  - SKIN IRRITATION [None]
  - FISTULA DISCHARGE [None]
  - IMPAIRED HEALING [None]
  - OPEN WOUND [None]
  - DIARRHOEA [None]
  - INTESTINAL FISTULA [None]
  - PURULENT DISCHARGE [None]
  - ABSCESS [None]
  - SURGERY [None]
  - ANAL FISTULA [None]
